FAERS Safety Report 5423374-1 (Version None)
Quarter: 2007Q3

REPORT INFORMATION
  Report Type: 
  Country: None (occurrence: None)
  Receive Date: 20070823
  Receipt Date: 20070816
  Transmission Date: 20080115
  Serious: Yes (Other)
  Sender: FDA-Public Use
  Company Number: US-JNJFOC-20070804178

PATIENT
  Sex: Male
  Weight: 99.79 kg

DRUGS (2)
  1. DURAGESIC-100 [Suspect]
     Route: 062
  2. DURAGESIC-100 [Suspect]
     Indication: PAIN
     Route: 062

REACTIONS (6)
  - APPLICATION SITE VESICLES [None]
  - ARTHRITIS [None]
  - INADEQUATE ANALGESIA [None]
  - INCORRECT DRUG ADMINISTRATION DURATION [None]
  - POOR QUALITY SLEEP [None]
  - WRONG TECHNIQUE IN DRUG USAGE PROCESS [None]
